FAERS Safety Report 24654561 (Version 2)
Quarter: 2025Q2

REPORT INFORMATION
  Report Type: Spontaneous
  Country: US (occurrence: US)
  Receive Date: 20241122
  Receipt Date: 20250506
  Transmission Date: 20250716
  Serious: Yes (Other)
  Sender: LUNDBECK
  Company Number: US-LUNDBECK-DKLU4007171

PATIENT
  Sex: Female

DRUGS (1)
  1. VYEPTI [Suspect]
     Active Substance: EPTINEZUMAB-JJMR
     Indication: Product used for unknown indication
     Route: 041

REACTIONS (2)
  - Foetal growth restriction [Unknown]
  - Pregnancy [Unknown]
